FAERS Safety Report 5166602-2 (Version None)
Quarter: 2006Q4

REPORT INFORMATION
  Report Type: 
  Country: None (occurrence: None)
  Receive Date: 20061207
  Receipt Date: 20061026
  Transmission Date: 20070319
  Serious: Yes (Hospitalization, Other)
  Sender: FDA-Public Use
  Company Number: CH-AMGEN-UK198137

PATIENT
  Sex: Female
  Weight: 65 kg

DRUGS (7)
  1. NEULASTA [Suspect]
     Indication: CHEMOTHERAPY
     Route: 058
     Dates: start: 20061019
  2. FLUOROURACIL [Concomitant]
     Route: 065
  3. EPIRUBICIN [Concomitant]
     Route: 065
  4. CYCLOPHOSPHAMIDE [Concomitant]
     Route: 065
  5. NAVOBAN [Concomitant]
     Route: 048
     Dates: start: 20061019, end: 20061021
  6. GASTROSIL [Concomitant]
     Route: 048
     Dates: start: 20061019, end: 20061021
  7. FORTECORTIN [Concomitant]
     Route: 048
     Dates: start: 20061019, end: 20061021

REACTIONS (3)
  - NEUTROPENIA [None]
  - THROMBOCYTOPENIA [None]
  - WHITE BLOOD CELL COUNT DECREASED [None]
